FAERS Safety Report 13536896 (Version 1)
Quarter: 2017Q2

REPORT INFORMATION
  Report Type: Spontaneous
  Country: US (occurrence: US)
  Receive Date: 20170511
  Receipt Date: 20170511
  Transmission Date: 20170830
  Serious: Yes (Other)
  Sender: FDA-Public Use
  Company Number: US-BAYER-2017-084699

PATIENT
  Age: 78 Year
  Sex: Male

DRUGS (2)
  1. STIVARGA [Suspect]
     Active Substance: REGORAFENIB
     Indication: LUNG NEOPLASM MALIGNANT
  2. STIVARGA [Suspect]
     Active Substance: REGORAFENIB
     Indication: HEPATIC CANCER
     Dosage: UNK
     Dates: start: 20170418, end: 20170503

REACTIONS (5)
  - Tongue blistering [None]
  - Fatigue [None]
  - Asthenia [None]
  - Tremor [None]
  - Urinary tract infection [None]
